FAERS Safety Report 15362838 (Version 2)
Quarter: 2018Q3

REPORT INFORMATION
  Report Type: Spontaneous
  Country: US (occurrence: US)
  Receive Date: 20180907
  Receipt Date: 20180918
  Transmission Date: 20181010
  Serious: Yes (Death)
  Sender: FDA-Public Use
  Company Number: US-JNJFOC-20180905976

PATIENT
  Age: 86 Year
  Sex: Female
  Weight: 47 kg

DRUGS (9)
  1. IMBRUVICA [Suspect]
     Active Substance: IBRUTINIB
     Indication: WALDENSTROM^S MACROGLOBULINAEMIA
     Route: 048
     Dates: start: 20180517, end: 20180809
  2. METHOTREXATE. [Concomitant]
     Active Substance: METHOTREXATE
  3. LEVOTHYROXINE. [Concomitant]
     Active Substance: LEVOTHYROXINE
  4. FOLIC ACID. [Concomitant]
     Active Substance: FOLIC ACID
  5. ASPIRIN. [Concomitant]
     Active Substance: ASPIRIN
  6. DOCUSATE [Concomitant]
     Active Substance: DOCUSATE
  7. ATENOLOL. [Concomitant]
     Active Substance: ATENOLOL
  8. VALSARTAN. [Concomitant]
     Active Substance: VALSARTAN
  9. ESCITALOPRAM [Concomitant]
     Active Substance: ESCITALOPRAM OXALATE

REACTIONS (3)
  - Incorrect dose administered [Unknown]
  - Cardiac arrest [Fatal]
  - Off label use [Unknown]

NARRATIVE: CASE EVENT DATE: 20180517
